FAERS Safety Report 17323078 (Version 4)
Quarter: 2025Q4

REPORT INFORMATION
  Report Type: Spontaneous
  Country: EU (occurrence: EU)
  Receive Date: 20200127
  Receipt Date: 20251105
  Transmission Date: 20260117
  Serious: Yes (Death, Hospitalization)
  Sender: ROCHE
  Company Number: EU-VELOXIS PHARMACEUTICALS-2019VELPL-000781

PATIENT
  Age: 23 Year
  Sex: Male

DRUGS (18)
  1. MYCOPHENOLATE MOFETIL [Suspect]
     Active Substance: MYCOPHENOLATE MOFETIL
     Indication: Immunosuppression
     Route: 065
  2. RITUXIMAB [Suspect]
     Active Substance: RITUXIMAB
     Indication: Lymphoma
     Route: 065
  3. ENVARSUS XR [Suspect]
     Active Substance: TACROLIMUS
     Indication: Immunosuppression
     Route: 065
  4. BENDAMUSTINE [Suspect]
     Active Substance: BENDAMUSTINE
     Indication: Lymphoma
     Route: 065
  5. DEXAMETHASONE [Suspect]
     Active Substance: DEXAMETHASONE
     Indication: Product used for unknown indication
     Route: 065
  6. CYTARABINE [Suspect]
     Active Substance: CYTARABINE
     Indication: Product used for unknown indication
     Route: 065
  7. ETOPOSIDE [Suspect]
     Active Substance: ETOPOSIDE
     Indication: Product used for unknown indication
     Route: 065
  8. DOXORUBICIN [Suspect]
     Active Substance: DOXORUBICIN
     Indication: Product used for unknown indication
     Route: 065
  9. CARBOPLATIN [Suspect]
     Active Substance: CARBOPLATIN
     Indication: Lymphoma
     Route: 065
  10. CIPROFLOXACIN [Suspect]
     Active Substance: CIPROFLOXACIN
     Indication: Infection
     Route: 065
  11. POSACONAZOLE [Suspect]
     Active Substance: POSACONAZOLE
     Indication: Infection
     Route: 065
  12. ACYCLOVIR [Suspect]
     Active Substance: ACYCLOVIR
     Indication: Product used for unknown indication
     Route: 065
  13. LEVOFLOXACIN [Suspect]
     Active Substance: LEVOFLOXACIN
     Indication: Cystitis noninfective
     Route: 065
  14. CEFTOLOZANE SULFATE\TAZOBACTAM SODIUM [Suspect]
     Active Substance: CEFTOLOZANE SULFATE\TAZOBACTAM SODIUM
     Indication: Pseudomonas infection
     Route: 065
  15. GANCICLOVIR [Concomitant]
     Active Substance: GANCICLOVIR
     Indication: Product used for unknown indication
  16. FOSFOMYCIN [Concomitant]
     Active Substance: FOSFOMYCIN
     Indication: Product used for unknown indication
  17. ANIDULAFUNGIN [Concomitant]
     Active Substance: ANIDULAFUNGIN
  18. VORICONAZOLE [Concomitant]
     Active Substance: VORICONAZOLE

REACTIONS (14)
  - Pseudomonas infection [Fatal]
  - Viral haemorrhagic cystitis [Fatal]
  - Venoocclusive liver disease [Fatal]
  - Enterococcal infection [Fatal]
  - Septic shock [Fatal]
  - Multiple organ dysfunction syndrome [Fatal]
  - Cytomegalovirus infection [Fatal]
  - Candida infection [Fatal]
  - Klebsiella infection [Fatal]
  - BK virus infection [Fatal]
  - Drug ineffective [Unknown]
  - Oliguria [Fatal]
  - Hyperbilirubinaemia [Fatal]
  - Drug resistance [Recovering/Resolving]
